FAERS Safety Report 6904710 (Version 1)
Quarter: 2020Q3

REPORT INFORMATION
  Report Type: Report from Study
  Country: US (occurrence: US)
  Receive Date: 20090209
  Receipt Date: 20090209
  Transmission Date: 20201105
  Serious: Yes (Hospitalization, Other)
  Sender: FDA-Public Use
  Company Number: US-ROCHE-610591

PATIENT
  Age: 72 Year
  Sex: Female

DRUGS (6)
  1. CALTRATE WITH VITAMIN D [Concomitant]
     Active Substance: CALCIUM CARBONATE\CHOLECALCIFEROL
     Dosage: CALTRATE D
  2. ASPIRIN. [Concomitant]
     Active Substance: ASPIRIN
     Dosage: DRUG: BABY ASPIRIN
  3. IBANDRONIC ACID. [Suspect]
     Active Substance: IBANDRONIC ACID
     Indication: OSTEOPENIA
     Dosage: PATIENT GOT OFF SCHEDULE AND STARTED TAKING BIONIVA ON 22ND OF LAST SEVERAL MONTHS.
     Route: 048
     Dates: start: 20080107
  4. LORTAB [Concomitant]
     Active Substance: ACETAMINOPHEN\HYDROCODONE BITARTRATE
  5. MULTI?VITAMIN [Concomitant]
     Active Substance: .ALPHA.-TOCOPHEROL ACETATE, DL-\ASCORBIC ACID\CYANOCOBALAMIN\FLUORIDE ION\FOLIC ACID\NIACIN\PYRIDOXINE\RIBOFLAVIN\THIAMINE\VITAMIN A\VITAMIN D
  6. SYNTHROID [Concomitant]
     Active Substance: LEVOTHYROXINE SODIUM

REACTIONS (3)
  - Knee arthroplasty [Unknown]
  - Atrial fibrillation [Unknown]
  - Cataract operation [Unknown]

NARRATIVE: CASE EVENT DATE: 20080101
